FAERS Safety Report 6804142-2 (Version None)
Quarter: 2010Q2

REPORT INFORMATION
  Report Type: 
  Country: None (occurrence: None)
  Receive Date: 20100628
  Receipt Date: 20070323
  Transmission Date: 20101027
  Serious: No
  Sender: FDA-Public Use
  Company Number: US-PFIZER INC-2006148081

PATIENT
  Sex: Female
  Weight: 113.4 kg

DRUGS (5)
  1. GENOTROPIN [Suspect]
     Indication: GROWTH HORMONE DEFICIENCY
     Dosage: DAILY
     Dates: start: 20030101, end: 20050101
  2. OXYCONTIN [Concomitant]
  3. ORTHO CYCLEN-28 [Concomitant]
  4. THYROID TAB [Concomitant]
  5. TRAZODONE HYDROCHLORIDE [Concomitant]

REACTIONS (1)
  - DRUG INEFFECTIVE [None]
